FAERS Safety Report 9416690 (Version 2)
Quarter: 2013Q3

REPORT INFORMATION
  Report Type: Spontaneous
  Country: FR (occurrence: FR)
  Receive Date: 20130724
  Receipt Date: 20130904
  Transmission Date: 20140515
  Serious: Yes (Hospitalization)
  Sender: FDA-Public Use
  Company Number: FR-PFIZER INC-2013214685

PATIENT
  Age: 80 Year
  Sex: Female

DRUGS (8)
  1. CORDARONE [Suspect]
     Indication: ATRIAL FIBRILLATION
     Dosage: 200 MG, ONCE DAILY
     Route: 048
     Dates: start: 201304, end: 20130606
  2. TRIATEC [Suspect]
     Dosage: 2.5 MG, TWICE DAILY
     Route: 048
     Dates: end: 20130606
  3. CARDENSIEL [Suspect]
     Dosage: 10 MG, ONCE DAILY
     Route: 048
     Dates: end: 20130606
  4. FUROSEMIDE [Suspect]
     Dosage: 20 MG, ONCE DAILY
     Route: 048
  5. KARDEGIC [Concomitant]
     Indication: ATRIAL FIBRILLATION
     Dosage: UNK
     Dates: end: 201304
  6. PREVISCAN [Concomitant]
     Dosage: UNK
     Dates: start: 201304
  7. FIXICAL [Concomitant]
     Dosage: UNK
  8. ZOPICLONE [Concomitant]
     Dosage: UNK

REACTIONS (2)
  - Bradycardia [Recovered/Resolved]
  - Hypotension [Recovered/Resolved]
